FAERS Safety Report 9396739 (Version 1)
Quarter: 2013Q3

REPORT INFORMATION
  Report Type: Report from Study
  Country: FR (occurrence: FR)
  Receive Date: 20130712
  Receipt Date: 20130712
  Transmission Date: 20140515
  Serious: Yes (Life-Threatening, Other)
  Sender: FDA-Public Use
  Company Number: FR-ROCHE-1242853

PATIENT
  Age: 76 Year
  Sex: Female

DRUGS (3)
  1. ZELBORAF [Suspect]
     Indication: NEOPLASM MALIGNANT
     Dosage: 2 TABLETS/MORNING, 2 TABLETS/EVENING
     Route: 048
     Dates: start: 20130417
  2. HYDREA [Concomitant]
     Route: 048
  3. ASPEGIC (FRANCE) [Concomitant]
     Route: 048

REACTIONS (4)
  - Weight decreased [Unknown]
  - Dyspepsia [Not Recovered/Not Resolved]
  - Nausea [Not Recovered/Not Resolved]
  - Vomiting [Not Recovered/Not Resolved]
